FAERS Safety Report 14385691 (Version 1)
Quarter: 2018Q1

REPORT INFORMATION
  Report Type: Spontaneous
  Country: US (occurrence: US)
  Receive Date: 20180115
  Receipt Date: 20180115
  Transmission Date: 20180509
  Serious: Yes (Other)
  Sender: FDA-Public Use
  Company Number: US-SA-2017SA022555

PATIENT
  Age: 49 Year
  Sex: Female
  Weight: 65.77 kg

DRUGS (11)
  1. EFFEXOR [Concomitant]
     Active Substance: VENLAFAXINE HYDROCHLORIDE
  2. HERCEPTIN [Concomitant]
     Active Substance: TRASTUZUMAB
     Route: 065
  3. PREVACID [Concomitant]
     Active Substance: LANSOPRAZOLE
  4. FLONASE [Concomitant]
     Active Substance: FLUTICASONE PROPIONATE
  5. ZYRTEC [Concomitant]
     Active Substance: CETIRIZINE HYDROCHLORIDE
  6. GABAPENTIN. [Concomitant]
     Active Substance: GABAPENTIN
  7. PERJETA [Concomitant]
     Active Substance: PERTUZUMAB
     Route: 065
  8. LORAZEPAM. [Concomitant]
     Active Substance: LORAZEPAM
  9. LINZESS [Concomitant]
     Active Substance: LINACLOTIDE
  10. TAXOTERE [Suspect]
     Active Substance: DOCETAXEL
     Indication: BREAST CANCER FEMALE
     Route: 051
     Dates: start: 20130516, end: 20130516
  11. TAXOTERE [Suspect]
     Active Substance: DOCETAXEL
     Indication: BREAST CANCER FEMALE
     Route: 051
     Dates: start: 20130810, end: 20130810

REACTIONS (5)
  - Psychological trauma [Unknown]
  - Impaired quality of life [Unknown]
  - Emotional distress [Unknown]
  - Pain [Unknown]
  - Alopecia [Not Recovered/Not Resolved]

NARRATIVE: CASE EVENT DATE: 20140219
